FAERS Safety Report 9167870 (Version 1)
Quarter: 2013Q1

REPORT INFORMATION
  Report Type: Spontaneous
  Country: ES (occurrence: None)
  Receive Date: 20130307
  Receipt Date: 20130307
  Transmission Date: 20140127
  Serious: Yes (Hospitalization, Other)
  Sender: FDA-Public Use
  Company Number: AUR-APL-2013-01814

PATIENT
  Age: 72 Year
  Sex: Male

DRUGS (7)
  1. SIMVASTATIN (SIMVASTATIN) [Suspect]
     Route: 048
  2. SIMVASTATIN (SIMVASTATIN) [Suspect]
     Route: 048
  3. SIMVASTATIN (SIMVASTATIN) [Suspect]
     Route: 048
  4. SIMVASTATIN (SIMVASTATIN) [Suspect]
     Route: 048
  5. TRANGOREX [Suspect]
  6. SINTROM [Suspect]
  7. ACETYLSALICYLIC ACID (ACETYLSALICYLIC ACID) [Suspect]

REACTIONS (3)
  - Subdural haemorrhage [None]
  - Drug interaction [None]
  - International normalised ratio increased [None]
